FAERS Safety Report 8170026-3 (Version None)
Quarter: 2012Q1

REPORT INFORMATION
  Report Type: 
  Country: None (occurrence: None)
  Receive Date: 20120228
  Receipt Date: 20120222
  Transmission Date: 20120608
  Serious: Yes (Hospitalization)
  Sender: FDA-Public Use
  Company Number: CA-B.I. PHARMACEUTICALS,INC./RIDGEFIELD-2012-CN-00408CN

PATIENT
  Age: 75 Year
  Sex: Female
  Weight: 63.5 kg

DRUGS (7)
  1. TIAZAC [Concomitant]
     Route: 065
  2. PRADAXA [Suspect]
     Dosage: 220 MG
     Route: 048
  3. LOPRESSOR [Concomitant]
     Route: 065
  4. SYNTHROID [Concomitant]
     Route: 065
  5. EFFEXOR XR [Concomitant]
     Route: 065
  6. POTASSIUM CHLORIDE [Concomitant]
     Route: 065
  7. LASIX [Concomitant]
     Route: 065

REACTIONS (4)
  - LIP SWELLING [None]
  - SKIN HAEMORRHAGE [None]
  - VIITH NERVE PARALYSIS [None]
  - SKIN PLAQUE [None]
